FAERS Safety Report 6100082-5 (Version None)
Quarter: 2009Q1

REPORT INFORMATION
  Report Type: 
  Country: None (occurrence: None)
  Receive Date: 20090303
  Receipt Date: 20090225
  Transmission Date: 20090719
  Serious: Yes (Other)
  Sender: FDA-Public Use
  Company Number: B0562232A

PATIENT
  Age: 73 Year
  Sex: Female

DRUGS (3)
  1. FORTUM [Suspect]
     Indication: INFECTION
     Route: 042
  2. RANITIDINE [Concomitant]
  3. DIGOXIN [Concomitant]

REACTIONS (2)
  - DELIRIUM [None]
  - THINKING ABNORMAL [None]
